FAERS Safety Report 8920961 (Version 2)
Quarter: 2012Q4

REPORT INFORMATION
  Report Type: 
  Country: US (occurrence: US)
  Receive Date: 20121122
  Receipt Date: 20121212
  Transmission Date: 20130627
  Serious: No
  Sender: FDA-Public Use
  Company Number: US-PFIZER INC-2012292431

PATIENT
  Sex: Female

DRUGS (1)
  1. LIPITOR [Suspect]
     Dosage: UNK

REACTIONS (11)
  - Fatigue [Unknown]
  - Pain in extremity [Unknown]
  - Myalgia [Unknown]
  - Pyrexia [Unknown]
  - Inflammation [Unknown]
  - Back pain [Unknown]
  - Swelling [Unknown]
  - Local swelling [Unknown]
  - Pain in jaw [Unknown]
  - Activities of daily living impaired [Unknown]
  - Anaemia [Unknown]
